FAERS Safety Report 5653467-5 (Version None)
Quarter: 2008Q1

REPORT INFORMATION
  Report Type: 
  Country: None (occurrence: None)
  Receive Date: 20080131
  Receipt Date: 20071024
  Transmission Date: 20080703
  Serious: No
  Sender: FDA-Public Use
  Company Number: US200710006271

PATIENT
  Age: 69 Year
  Sex: Female
  Weight: 83 kg

DRUGS (4)
  1. BYETTA [Suspect]
     Indication: TYPE 2 DIABETES MELLITUS
     Dosage: 5 UG, 2/D, SUBCUTANEOUS ; 10 UG, 2/D, SUBCUTANEOUS
     Route: 058
     Dates: start: 20060401, end: 20060501
  2. BYETTA [Suspect]
     Indication: TYPE 2 DIABETES MELLITUS
     Dosage: 5 UG, 2/D, SUBCUTANEOUS ; 10 UG, 2/D, SUBCUTANEOUS
     Route: 058
     Dates: start: 20060501
  3. GLUCOPHAGE /USA/ (METFORMIN HYDROCHLORIDE) [Concomitant]
  4. AGGRENOX (ACETYLSALCYLIC ACID, DIPYRIDAMOLE) [Concomitant]

REACTIONS (4)
  - DRUG ADMINISTRATION ERROR [None]
  - EARLY SATIETY [None]
  - INJECTION SITE PAIN [None]
  - WEIGHT DECREASED [None]
